FAERS Safety Report 12405314 (Version 2)
Quarter: 2016Q2

REPORT INFORMATION
  Report Type: Spontaneous
  Country: CN (occurrence: CN)
  Receive Date: 20160525
  Receipt Date: 20160527
  Transmission Date: 20160815
  Serious: Yes (Death, Life-Threatening, Hospitalization, Other)
  Sender: FDA-Public Use
  Company Number: CN-ASTRAZENECA-2016SE53873

PATIENT
  Age: 867 Month
  Sex: Female

DRUGS (11)
  1. NEXIUM [Suspect]
     Active Substance: ESOMEPRAZOLE MAGNESIUM
     Dosage: 40.0MG UNKNOWN
     Route: 041
     Dates: start: 20160402, end: 20160404
  2. CLARITYNE [Concomitant]
     Active Substance: LORATADINE
     Route: 048
     Dates: start: 20160401, end: 20160404
  3. KETOSTERIL [Concomitant]
     Active Substance: AMINO ACIDS
     Indication: PLASMA PROTEIN METABOLISM DISORDER
     Dosage: 4 DF TID
     Route: 048
     Dates: start: 20160401, end: 20160404
  4. FERROUS SUCCINATE [Concomitant]
     Active Substance: FERROUS SUCCINATE
     Dosage: 0.1G TID
  5. SODIUM CHLORIDE. [Concomitant]
     Active Substance: SODIUM CHLORIDE
     Route: 041
     Dates: start: 20160401, end: 20160404
  6. SODIUM CHLORIDE. [Concomitant]
     Active Substance: SODIUM CHLORIDE
     Route: 041
     Dates: start: 20160401, end: 20160404
  7. SODIUM CHLORIDE. [Concomitant]
     Active Substance: SODIUM CHLORIDE
     Route: 041
     Dates: start: 20160402, end: 20160404
  8. FORLAX [Concomitant]
     Active Substance: POLYETHYLENE GLYCOL 4000
     Dosage: 4000 POWDER, 10 G THREE TIMES A DAY
     Route: 048
     Dates: start: 20160401, end: 20160404
  9. LANSOPRAZOLE. [Concomitant]
     Active Substance: LANSOPRAZOLE
     Indication: ABDOMINAL DISCOMFORT
  10. C VITAMIN [Concomitant]
     Dosage: 2.0G UNKNOWN
     Dates: start: 20160401, end: 20160404
  11. SOLU-MEDROL [Concomitant]
     Active Substance: METHYLPREDNISOLONE SODIUM SUCCINATE
     Dosage: 40 MILLIGRAMS TWO TIMES A DAY
     Route: 041
     Dates: start: 20160401, end: 20160404

REACTIONS (5)
  - Lung infection [Unknown]
  - Dermatitis exfoliative [Fatal]
  - Urticaria [Fatal]
  - Drug eruption [Unknown]
  - Shock [Unknown]

NARRATIVE: CASE EVENT DATE: 201603
